FAERS Safety Report 11632827 (Version 1)
Quarter: 2015Q4

REPORT INFORMATION
  Report Type: Spontaneous
  Country: US (occurrence: None)
  Receive Date: 20151014
  Receipt Date: 20151014
  Transmission Date: 20160304
  Serious: Yes (Life-Threatening, Hospitalization)
  Sender: FDA-Public Use
  Company Number: None

PATIENT
  Age: 23 Year
  Sex: Female
  Weight: 101.61 kg

DRUGS (3)
  1. LEVETIRACETAM USP 750 MG LUPIN LIMITED FOR LUPIN PHARMACEUT [Suspect]
     Active Substance: LEVETIRACETAM
     Indication: SEIZURE
     Route: 048
  2. VIMPAT [Concomitant]
     Active Substance: LACOSAMIDE
  3. SERTRALINE [Concomitant]
     Active Substance: SERTRALINE HYDROCHLORIDE

REACTIONS (3)
  - Generalised tonic-clonic seizure [None]
  - Joint dislocation [None]
  - Respiratory disorder [None]

NARRATIVE: CASE EVENT DATE: 20150603
